FAERS Safety Report 6613480-8 (Version None)
Quarter: 2010Q1

REPORT INFORMATION
  Report Type: 
  Country: None (occurrence: None)
  Receive Date: 20100304
  Receipt Date: 20100222
  Transmission Date: 20100710
  Serious: Yes (Death, Hospitalization, Disabling)
  Sender: FDA-Public Use
  Company Number: JP-JNJFOC-20091106306

PATIENT
  Sex: Female
  Weight: 54 kg

DRUGS (7)
  1. DOXORUBICIN HCL [Suspect]
     Indication: OVARIAN CANCER RECURRENT
     Dosage: CYCLE 1
     Route: 042
  2. CEFOTAX [Concomitant]
     Route: 042
  3. LASIX [Concomitant]
     Route: 042
  4. KYTRIL [Concomitant]
     Indication: PROPHYLAXIS
     Route: 048
  5. NAUZELIN [Concomitant]
     Indication: PROPHYLAXIS
     Route: 048
  6. LOXONIN [Concomitant]
     Route: 048
  7. PURSENNID [Concomitant]
     Route: 048

REACTIONS (7)
  - DISSEMINATED INTRAVASCULAR COAGULATION [None]
  - HEPATITIS ACUTE [None]
  - OVARIAN CANCER [None]
  - RENAL FAILURE ACUTE [None]
  - SEPSIS [None]
  - URINARY TRACT INFECTION [None]
  - WHITE BLOOD CELL COUNT DECREASED [None]
